FAERS Safety Report 12463395 (Version 2)
Quarter: 2016Q2

REPORT INFORMATION
  Report Type: Report from Study
  Country: CO (occurrence: CO)
  Receive Date: 20160614
  Receipt Date: 20160628
  Transmission Date: 20160815
  Serious: Yes (Other)
  Sender: FDA-Public Use
  Company Number: PHHY2016CO021102

PATIENT
  Sex: Male
  Weight: 89 kg

DRUGS (1)
  1. GLIVEC [Suspect]
     Active Substance: IMATINIB MESYLATE
     Indication: CHRONIC MYELOID LEUKAEMIA
     Dosage: 400 MG, BID
     Route: 048
     Dates: start: 2009, end: 2013

REACTIONS (4)
  - Blindness unilateral [Unknown]
  - Deafness [Unknown]
  - Drug ineffective [Unknown]
  - Intracranial pressure increased [Unknown]
